FAERS Safety Report 17852345 (Version 2)
Quarter: 2020Q2

REPORT INFORMATION
  Report Type: Report from Study
  Country: None (occurrence: US)
  Receive Date: 20200603
  Receipt Date: 20200626
  Transmission Date: 20200714
  Serious: Yes (Other)
  Sender: FDA-Public Use
  Company Number: US-ABBVIE-20K-163-3424507-00

PATIENT
  Age: 63 Year
  Sex: Female

DRUGS (2)
  1. ALLEGRA-D [Concomitant]
     Active Substance: FEXOFENADINE\PSEUDOEPHEDRINE
     Indication: PRODUCT USED FOR UNKNOWN INDICATION
  2. HUMIRA [Suspect]
     Active Substance: ADALIMUMAB
     Indication: COLITIS ULCERATIVE
     Dosage: CITRATE FREE
     Route: 058
     Dates: start: 201912

REACTIONS (8)
  - Scab [Unknown]
  - Lacrimation increased [Unknown]
  - Vision blurred [Recovering/Resolving]
  - Hypersensitivity [Recovering/Resolving]
  - Asthma [Recovering/Resolving]
  - Dandruff [Recovering/Resolving]
  - Blindness unilateral [Recovered/Resolved]
  - Eye disorder [Recovering/Resolving]

NARRATIVE: CASE EVENT DATE: 202001
